FAERS Safety Report 15275957 (Version 6)
Quarter: 2018Q4

REPORT INFORMATION
  Report Type: Spontaneous
  Country: CH (occurrence: CH)
  Receive Date: 20180814
  Receipt Date: 20181016
  Transmission Date: 20190204
  Serious: Yes (Hospitalization)
  Sender: FDA-Public Use
  Company Number: CH-LPDUSPRD-20181446

PATIENT
  Age: 66 Year
  Sex: Female
  Weight: 51 kg

DRUGS (4)
  1. FERINJECT [Suspect]
     Active Substance: FERRIC CARBOXYMALTOSE
     Dosage: 500 MG, 1 TOTAL
     Route: 041
     Dates: start: 20180706, end: 20180706
  2. TRAMADOL RETARD [Concomitant]
     Active Substance: TRAMADOL
     Dosage: 50 MG IN RESERVE
     Route: 048
  3. MG 5-LONGORAL [Concomitant]
     Dosage: UNKNOWN
     Route: 048
  4. TEMESTA [LORAZEPAM] [Concomitant]
     Active Substance: LORAZEPAM
     Dosage: 0.1 MG IN RESERVE
     Route: 048

REACTIONS (8)
  - Dyspnoea [Unknown]
  - Feeling hot [Unknown]
  - Fatigue [Unknown]
  - Feeling abnormal [Unknown]
  - Wrong product administered [None]
  - Pain [Unknown]
  - Respiratory distress [Recovering/Resolving]
  - Seronegative arthritis [Recovering/Resolving]

NARRATIVE: CASE EVENT DATE: 201807
